FAERS Safety Report 5531466-1 (Version None)
Quarter: 2007Q4

REPORT INFORMATION
  Report Type: 
  Country: None (occurrence: None)
  Receive Date: 20071203
  Receipt Date: 20071120
  Transmission Date: 20080405
  Serious: Yes (Hospitalization, Disabling, Other)
  Sender: FDA-Public Use
  Company Number: PHHO2006US05247

PATIENT
  Age: 58 Year
  Sex: Male
  Weight: 102 kg

DRUGS (6)
  1. CERTICAN [Suspect]
     Indication: RENAL TRANSPLANT
     Route: 048
     Dates: start: 20060320, end: 20060322
  2. CERTICAN [Suspect]
     Route: 048
     Dates: start: 20060323, end: 20060330
  3. CERTICAN [Suspect]
     Dosage: 360 MG, BID
     Route: 048
     Dates: start: 20051224, end: 20060316
  4. NEORAL [Concomitant]
     Indication: RENAL TRANSPLANT
     Dosage: 150 MG, BID
     Route: 048
     Dates: end: 20060504
  5. NEORAL [Concomitant]
     Dosage: 200 MG, BID
     Route: 048
     Dates: start: 20051224, end: 20060504
  6. THYMOGLOBULIN [Suspect]

REACTIONS (17)
  - ARTHRALGIA [None]
  - BLOOD CREATININE INCREASED [None]
  - CATHETER PLACEMENT [None]
  - DEEP VEIN THROMBOSIS [None]
  - DRUG INEFFECTIVE [None]
  - EXTRASYSTOLES [None]
  - HYDRONEPHROSIS [None]
  - KIDNEY TRANSPLANT REJECTION [None]
  - LUNG INFILTRATION [None]
  - MALAISE [None]
  - MUSCULOSKELETAL STIFFNESS [None]
  - MYALGIA [None]
  - NEUTROPENIA [None]
  - PANCYTOPENIA [None]
  - PLEURAL EFFUSION [None]
  - PNEUMONIA [None]
  - PYREXIA [None]
